FAERS Safety Report 12621591 (Version 3)
Quarter: 2016Q3

REPORT INFORMATION
  Report Type: Spontaneous
  Country: US (occurrence: US)
  Receive Date: 20160804
  Receipt Date: 20160808
  Transmission Date: 20161109
  Serious: No
  Sender: FDA-Public Use
  Company Number: US-BEH-2016062396

PATIENT
  Sex: Female
  Weight: 85 kg

DRUGS (15)
  1. LAMICTAL [Concomitant]
     Active Substance: LAMOTRIGINE
  2. LEXAPRO [Concomitant]
     Active Substance: ESCITALOPRAM OXALATE
  3. TETRACYCLINE [Concomitant]
     Active Substance: TETRACYCLINE
  4. HIZENTRA [Suspect]
     Active Substance: HUMAN IMMUNOGLOBULIN G
     Route: 058
  5. LIDOCAINE. [Concomitant]
     Active Substance: LIDOCAINE
  6. EPIPEN [Concomitant]
     Active Substance: EPINEPHRINE
  7. INSULIN [Concomitant]
     Active Substance: INSULIN NOS
  8. COUMADIN [Concomitant]
     Active Substance: WARFARIN SODIUM
  9. HIZENTRA [Suspect]
     Active Substance: HUMAN IMMUNOGLOBULIN G
     Route: 058
  10. HIZENTRA [Suspect]
     Active Substance: HUMAN IMMUNOGLOBULIN G
     Route: 058
  11. HIZENTRA [Suspect]
     Active Substance: HUMAN IMMUNOGLOBULIN G
     Route: 058
  12. PREDNISONE. [Concomitant]
     Active Substance: PREDNISONE
  13. MIRAPEX [Concomitant]
     Active Substance: PRAMIPEXOLE DIHYDROCHLORIDE
  14. MUCINEX D ER [Concomitant]
  15. HIZENTRA [Suspect]
     Active Substance: HUMAN IMMUNOGLOBULIN G
     Indication: HYPOGAMMAGLOBULINAEMIA
     Route: 058

REACTIONS (3)
  - Infusion site irritation [Unknown]
  - Infusion site warmth [Unknown]
  - Infusion site erythema [Unknown]
